FAERS Safety Report 4466233-3 (Version None)
Quarter: 2004Q4

REPORT INFORMATION
  Report Type: 
  Country: None (occurrence: None)
  Receive Date: 20041005
  Receipt Date: 20040924
  Transmission Date: 20050328
  Serious: Yes (Hospitalization)
  Sender: FDA-Public Use
  Company Number: PL-JNJFOC-20040907374

PATIENT
  Age: 14 Year
  Sex: Female

DRUGS (1)
  1. RISPOLEPT [Suspect]
     Indication: DRUG USE FOR UNKNOWN INDICATION
     Route: 049

REACTIONS (3)
  - EXTRAPYRAMIDAL DISORDER [None]
  - OVERDOSE [None]
  - RENAL DISORDER [None]
